FAERS Safety Report 20673176 (Version 1)
Quarter: 2022Q2

REPORT INFORMATION
  Report Type: Spontaneous
  Country: US (occurrence: None)
  Receive Date: 20220403
  Receipt Date: 20220403
  Transmission Date: 20220721
  Serious: Yes (Hospitalization)
  Sender: FDA-Public Use
  Company Number: None

PATIENT
  Age: 87 Year
  Sex: Male

DRUGS (1)
  1. IVOSIDENIB [Suspect]
     Active Substance: IVOSIDENIB
     Indication: Acute myeloid leukaemia
     Dosage: 500 MG EVERY DAY PO?
     Route: 048
     Dates: start: 20211203, end: 20211227

REACTIONS (6)
  - Differentiation syndrome [None]
  - Acute myocardial infarction [None]
  - Acute myocardial infarction [None]
  - Respiratory failure [None]
  - Pulmonary oedema [None]
  - Disease complication [None]

NARRATIVE: CASE EVENT DATE: 20211227
